FAERS Safety Report 13038104 (Version 1)
Quarter: 2016Q4

REPORT INFORMATION
  Report Type: Spontaneous
  Country: US (occurrence: US)
  Receive Date: 20161218
  Receipt Date: 20161218
  Transmission Date: 20170207
  Serious: Yes (Other)
  Sender: FDA-Public Use
  Company Number: US-CONCORDIA PHARMACEUTICALS INC.-GSH201612-006337

PATIENT
  Sex: Female

DRUGS (2)
  1. HARVONIA [Suspect]
     Active Substance: LEDIPASVIR\SOFOSBUVIR
     Indication: HEPATITIS C
  2. ZONEGRAN [Suspect]
     Active Substance: ZONISAMIDE

REACTIONS (8)
  - Decreased appetite [Unknown]
  - Decreased interest [Unknown]
  - Staring [Unknown]
  - Grunting [Unknown]
  - Anal incontinence [Unknown]
  - Drug interaction [Unknown]
  - Seizure [Unknown]
  - Urinary incontinence [Unknown]
